FAERS Safety Report 7537376-2 (Version None)
Quarter: 2011Q2

REPORT INFORMATION
  Report Type: 
  Country: None (occurrence: None)
  Receive Date: 20110608
  Receipt Date: 20110608
  Transmission Date: 20111010
  Serious: Yes (Hospitalization)
  Sender: FDA-Public Use
  Company Number: None

PATIENT
  Age: 23 Year
  Sex: Male
  Weight: 57.8 kg

DRUGS (2)
  1. IBUPROFEN [Suspect]
     Indication: PAIN
     Dosage: 800 MG QID PO
     Route: 048
     Dates: start: 20110523
  2. METHYLPREDNISOLONE [Suspect]
     Indication: HYPERSENSITIVITY
     Dates: start: 20110526

REACTIONS (8)
  - GASTRIC HAEMORRHAGE [None]
  - GASTROINTESTINAL ULCER [None]
  - EPINEPHRINE [None]
  - SWELLING [None]
  - BLOOD IRON [None]
  - ANAEMIA [None]
  - HYPERSENSITIVITY [None]
  - HAEMORRHAGE [None]
